FAERS Safety Report 24020332 (Version 1)
Quarter: 2024Q2

REPORT INFORMATION
  Report Type: Report from Study
  Country: FR (occurrence: FR)
  Receive Date: 20240627
  Receipt Date: 20240627
  Transmission Date: 20240716
  Serious: Yes (Other)
  Sender: FDA-Public Use
  Company Number: FR-JNJFOC-20230435022

PATIENT
  Age: 14 Year
  Sex: Male

DRUGS (2)
  1. REMICADE [Suspect]
     Active Substance: INFLIXIMAB
     Indication: Crohn^s disease
     Route: 041
     Dates: start: 20131119, end: 20131119
  2. REMICADE [Suspect]
     Active Substance: INFLIXIMAB
     Route: 041
     Dates: start: 20131203, end: 20150417

REACTIONS (13)
  - Oesophageal ulcer [Recovered/Resolved]
  - Clostridium difficile infection [Recovered/Resolved]
  - Hyperleukocytosis [Recovered/Resolved]
  - Renal failure [Recovered/Resolved]
  - Decreased appetite [Recovered/Resolved]
  - Asthenia [Recovered/Resolved]
  - Dysphagia [Recovered/Resolved]
  - Oesophageal pain [Recovered/Resolved]
  - Fistula [Recovered/Resolved]
  - Haemorrhoids [Recovered/Resolved]
  - Night sweats [Recovered/Resolved]
  - Orthostatic hypotension [Recovered/Resolved]
  - Thrombocytosis [Recovered/Resolved]

NARRATIVE: CASE EVENT DATE: 20160119
